FAERS Safety Report 10164273 (Version 2)
Quarter: 2014Q2

REPORT INFORMATION
  Report Type: Spontaneous
  Country: US (occurrence: US)
  Receive Date: 20140510
  Receipt Date: 20140510
  Transmission Date: 20141212
  Serious: No
  Sender: FDA-Public Use
  Company Number: US-BRISTOL-MYERS SQUIBB COMPANY-20095642

PATIENT
  Age: 66 Year
  Sex: Female
  Weight: 64.4 kg

DRUGS (4)
  1. BYETTA [Suspect]
     Indication: TYPE 2 DIABETES MELLITUS
     Route: 058
  2. BENICAR [Concomitant]
     Dosage: 20MG (CUTS THIS IN HALF AND TAKES IT ONCE A DAY)
  3. BENICAR [Concomitant]
  4. PANTOPRAZOLE [Concomitant]

REACTIONS (5)
  - Abdominal pain upper [Unknown]
  - Headache [Unknown]
  - Fatigue [Unknown]
  - Drug dose omission [Unknown]
  - Weight decreased [Unknown]
